FAERS Safety Report 8817842 (Version 2)
Quarter: 2012Q4

REPORT INFORMATION
  Report Type: 
  Country: DE (occurrence: DE)
  Receive Date: 20121004
  Receipt Date: 20121031
  Transmission Date: 20130627
  Serious: Yes (Other)
  Sender: FDA-Public Use
  Company Number: DE-AMGEN-DEUSP2012060675

PATIENT
  Age: 63 Year
  Sex: Male
  Weight: 76 kg

DRUGS (5)
  1. ARANESP [Suspect]
     Indication: PRODUCT USED FOR UNKNOWN INDICATION
     Dosage: 10-100 mcg, qwk
     Route: 042
     Dates: start: 20060919, end: 20120828
  2. ATACAND [Concomitant]
     Indication: HYPERTENSION
     Dosage: 16 mg, bid
     Route: 048
     Dates: start: 20120216, end: 20120926
  3. TORASEMID [Concomitant]
     Indication: RENAL FAILURE
     Dosage: UNK
     Dates: start: 20120626, end: 20120926
  4. FOSRENOL [Concomitant]
     Indication: HYPERPHOSPHATAEMIA
     Dosage: 2250 mg, bid
     Dates: start: 20120525, end: 20120926
  5. ACTRAPHANE [Concomitant]
     Indication: DIABETES MELLITUS
     Dosage: 5 IU, bid
     Route: 058
     Dates: start: 20050822, end: 20120926

REACTIONS (1)
  - Haemoglobin decreased [Recovering/Resolving]
